FAERS Safety Report 25039883 (Version 1)
Quarter: 2025Q1

REPORT INFORMATION
  Report Type: Spontaneous
  Country: US (occurrence: US)
  Receive Date: 20250305
  Receipt Date: 20250305
  Transmission Date: 20250408
  Serious: Yes (Hospitalization, Other)
  Sender: COOPERSURGICAL
  Company Number: US-COOPERSURGICAL, INC.-2025CPS001332

PATIENT
  Age: 37 Year
  Sex: Female
  Weight: 52.154 kg

DRUGS (1)
  1. PARAGARD T 380A [Suspect]
     Active Substance: COPPER
     Indication: Contraception
     Route: 015
     Dates: start: 20140513

REACTIONS (10)
  - Laparoscopic surgery [Recovered/Resolved]
  - Post procedural infection [Unknown]
  - Post procedural complication [Unknown]
  - Uterine injury [Recovered/Resolved]
  - Device breakage [Unknown]
  - Foreign body in urogenital tract [Unknown]
  - Complication of device removal [Unknown]
  - Procedural pain [Recovered/Resolved]
  - Emotional disorder [Unknown]
  - Uterine pain [Recovered/Resolved]

NARRATIVE: CASE EVENT DATE: 20240209
